FAERS Safety Report 17244544 (Version 2)
Quarter: 2020Q1

REPORT INFORMATION
  Report Type: Report from Study
  Country: US (occurrence: US)
  Receive Date: 20200107
  Receipt Date: 20200122
  Transmission Date: 20200409
  Serious: Yes (Hospitalization)
  Sender: FDA-Public Use
  Company Number: US-GILEAD-2020-0445338

PATIENT
  Age: 66 Year
  Sex: Female

DRUGS (8)
  1. ATORVASTATIN [Concomitant]
     Active Substance: ATORVASTATIN
  2. VITAMIN D NOS [Concomitant]
     Active Substance: VITAMIN D NOS
  3. FLUTICASONE PROPIONATE;SALMETEROL [Concomitant]
     Active Substance: FLUTICASONE PROPIONATE\SALMETEROL XINAFOATE
  4. FOLIC ACID. [Concomitant]
     Active Substance: FOLIC ACID
  5. OXYCODONE [Concomitant]
     Active Substance: OXYCODONE
  6. AMBRISENTAN [Suspect]
     Active Substance: AMBRISENTAN
     Indication: PULMONARY HYPERTENSION
     Dosage: 10 MG, QD
     Route: 065
     Dates: start: 20160120
  7. TIZANIDINE. [Concomitant]
     Active Substance: TIZANIDINE
  8. TRAMADOL. [Concomitant]
     Active Substance: TRAMADOL

REACTIONS (1)
  - Foot operation [Unknown]
